FAERS Safety Report 8594613-3 (Version None)
Quarter: 2012Q3

REPORT INFORMATION
  Report Type: 
  Country: None (occurrence: None)
  Receive Date: 20120815
  Receipt Date: 20120813
  Transmission Date: 20120928
  Serious: No
  Sender: FDA-Public Use
  Company Number: US-PFIZER INC-2012198239

PATIENT
  Age: 45 Year
  Sex: Female
  Weight: 94.331 kg

DRUGS (7)
  1. EFFEXOR XR [Concomitant]
     Indication: MOOD SWINGS
  2. VENLAFAXINE HCL [Suspect]
     Indication: ANTIDEPRESSANT THERAPY
  3. NEXIUM [Concomitant]
     Indication: GASTROOESOPHAGEAL REFLUX DISEASE
     Dosage: 40 MG, DAILY
  4. VENLAFAXINE HCL [Suspect]
     Indication: HOT FLUSH
     Dosage: 37.5MG (TWO CAPSULES) DAILY
     Route: 048
     Dates: start: 20080101, end: 20080101
  5. VENLAFAXINE HCL [Suspect]
     Indication: MOOD SWINGS
  6. EFFEXOR XR [Concomitant]
     Indication: HOT FLUSH
     Dosage: UNK
  7. EFFEXOR XR [Concomitant]
     Indication: ANTIDEPRESSANT THERAPY

REACTIONS (3)
  - HEADACHE [None]
  - VOMITING [None]
  - MALAISE [None]
